FAERS Safety Report 21578133 (Version 1)
Quarter: 2022Q4

REPORT INFORMATION
  Report Type: Spontaneous
  Country: JP (occurrence: JP)
  Receive Date: 20221110
  Receipt Date: 20221110
  Transmission Date: 20230112
  Serious: Yes (Death, Life-Threatening, Hospitalization)
  Sender: FDA-Public Use
  Company Number: JP-ELI_LILLY_AND_COMPANY-JP202209000101

PATIENT
  Age: 62 Year
  Sex: Male
  Weight: 49 kg

DRUGS (9)
  1. NECITUMUMAB [Suspect]
     Active Substance: NECITUMUMAB
     Indication: Non-small cell lung cancer
     Dosage: 800 MG, CYCLICAL
     Route: 042
     Dates: start: 20220114, end: 20220502
  2. GEMCITABINE HYDROCHLORIDE [Suspect]
     Active Substance: GEMCITABINE HYDROCHLORIDE
     Indication: Non-small cell lung cancer
     Dosage: 1936 MG, CYCLICAL
     Route: 042
     Dates: start: 20220114
  3. GEMCITABINE HYDROCHLORIDE [Suspect]
     Active Substance: GEMCITABINE HYDROCHLORIDE
     Dosage: 1452 MG, CYCLICAL
     Route: 042
     Dates: start: 20220216
  4. GEMCITABINE HYDROCHLORIDE [Suspect]
     Active Substance: GEMCITABINE HYDROCHLORIDE
     Dosage: 968 MG, CYCLICAL
     Route: 042
     Dates: start: 20220413, end: 20220502
  5. CISPLATIN [Suspect]
     Active Substance: CISPLATIN
     Indication: Non-small cell lung cancer
     Dosage: 116 MG, CYCLICAL
     Route: 042
     Dates: start: 20220114
  6. CISPLATIN [Suspect]
     Active Substance: CISPLATIN
     Dosage: 87 MG, CYCLICAL
     Route: 042
     Dates: start: 20220216
  7. CISPLATIN [Suspect]
     Active Substance: CISPLATIN
     Dosage: 58 MG, CYCLICAL
     Route: 042
     Dates: start: 20220413, end: 20220502
  8. POLAPREZINC [Concomitant]
     Active Substance: POLAPREZINC
  9. MAGNESIUM SULFATE [Concomitant]
     Active Substance: MAGNESIUM SULFATE
     Dosage: UNK
     Dates: start: 20220316, end: 20220511

REACTIONS (10)
  - Malignant neoplasm progression [Fatal]
  - Anaemia [Recovering/Resolving]
  - Hypoaesthesia [Unknown]
  - Decreased appetite [Recovering/Resolving]
  - Nausea [Recovering/Resolving]
  - Hepatic function abnormal [Unknown]
  - Duodenal ulcer [Unknown]
  - Tumour associated fever [Unknown]
  - Drug eruption [Recovering/Resolving]
  - Stomatitis [Recovered/Resolved]

NARRATIVE: CASE EVENT DATE: 20220118
